FAERS Safety Report 9340612 (Version 1)
Quarter: 2013Q2

REPORT INFORMATION
  Report Type: Spontaneous
  Country: FR (occurrence: FR)
  Receive Date: 20130610
  Receipt Date: 20130610
  Transmission Date: 20140414
  Serious: Yes (Other)
  Sender: FDA-Public Use
  Company Number: PHHY2013FR057566

PATIENT
  Age: 69 Year
  Sex: Female

DRUGS (4)
  1. MIFLASONE [Suspect]
     Indication: BRONCHITIS
     Dosage: 200 UG, BID
     Dates: start: 20130410
  2. LEVOFLOXACIN [Suspect]
     Indication: BRONCHITIS
     Dosage: 500 MG, QD
     Route: 048
     Dates: start: 20130410, end: 20130413
  3. EXOMUC [Suspect]
     Indication: BRONCHITIS
     Dosage: 200 MG, TID (IN THE MORNING, AT NOON AND AT 4:00PM )
     Route: 048
     Dates: start: 20130410
  4. OPTIVE [Concomitant]
     Indication: EYE LUBRICATION THERAPY

REACTIONS (7)
  - Aphonia [Recovered/Resolved]
  - Bronchospasm [Recovered/Resolved]
  - Cough [Recovered/Resolved]
  - Dyspnoea [Recovered/Resolved]
  - Migraine [Recovered/Resolved]
  - Muscle spasms [Recovered/Resolved]
  - Constipation [Recovered/Resolved]
